FAERS Safety Report 4385622-9 (Version None)
Quarter: 2004Q2

REPORT INFORMATION
  Report Type: 
  Country: None (occurrence: None)
  Receive Date: 20040625
  Receipt Date: 20040625
  Transmission Date: 20050107
  Serious: Yes (Hospitalization)
  Sender: FDA-Public Use
  Company Number: None

PATIENT
  Age: 46 Year
  Sex: Female

DRUGS (2)
  1. TRAZODONE HCL [Suspect]
     Indication: DEPRESSION
  2. ALCOHOL [Suspect]

REACTIONS (4)
  - ACIDOSIS [None]
  - BLOOD ALCOHOL INCREASED [None]
  - MULTIPLE DRUG OVERDOSE [None]
  - SEDATION [None]
